FAERS Safety Report 8560739-3 (Version None)
Quarter: 2012Q3

REPORT INFORMATION
  Report Type: 
  Country: None (occurrence: None)
  Receive Date: 20120802
  Receipt Date: 20120730
  Transmission Date: 20120928
  Serious: Yes (Death, Hospitalization, Other)
  Sender: FDA-Public Use
  Company Number: PHHY2012US065576

PATIENT
  Age: 38 Year
  Sex: Female

DRUGS (3)
  1. HEPARIN [Suspect]
     Indication: THORACIC OUTLET SYNDROME
  2. CYANOCOBALAMIN [Concomitant]
     Indication: THORACIC OUTLET SYNDROME
  3. LIDOCAINE [Concomitant]
     Indication: THORACIC OUTLET SYNDROME

REACTIONS (11)
  - CARDIO-RESPIRATORY ARREST [None]
  - SINUS TACHYCARDIA [None]
  - SPINAL CORD INFARCTION [None]
  - NAUSEA [None]
  - LOSS OF CONSCIOUSNESS [None]
  - VERTEBRAL ARTERY DISSECTION [None]
  - NECK PAIN [None]
  - SUBARACHNOID HAEMORRHAGE [None]
  - ASTHENIA [None]
  - HYPOXIC-ISCHAEMIC ENCEPHALOPATHY [None]
  - VENTRICULAR TACHYCARDIA [None]
